FAERS Safety Report 12135412 (Version 2)
Quarter: 2016Q2

REPORT INFORMATION
  Report Type: Spontaneous
  Country: US (occurrence: US)
  Receive Date: 20160302
  Receipt Date: 20160410
  Transmission Date: 20160815
  Serious: No
  Sender: FDA-Public Use
  Company Number: US-JNJFOC-20160111520

PATIENT
  Age: 7 Year
  Sex: Female
  Weight: 45.36 kg

DRUGS (5)
  1. INVEGA [Suspect]
     Active Substance: PALIPERIDONE
     Indication: AUTISM
     Route: 048
  2. INVEGA [Suspect]
     Active Substance: PALIPERIDONE
     Indication: BRAIN INJURY
     Route: 048
  3. INVEGA [Suspect]
     Active Substance: PALIPERIDONE
     Indication: BRAIN INJURY
     Route: 048
     Dates: start: 2015
  4. MELATONIN [Concomitant]
     Active Substance: MELATONIN
     Route: 065
  5. INVEGA [Suspect]
     Active Substance: PALIPERIDONE
     Indication: AUTISM
     Route: 048
     Dates: start: 2015

REACTIONS (9)
  - Off label use [Unknown]
  - Palpitations [Unknown]
  - Hyperhidrosis [Recovering/Resolving]
  - Product use issue [Unknown]
  - Drug effect decreased [Not Recovered/Not Resolved]
  - Thirst [Recovering/Resolving]
  - Screaming [Recovering/Resolving]
  - Crying [Recovering/Resolving]
  - Pollakiuria [Recovering/Resolving]

NARRATIVE: CASE EVENT DATE: 20160108
